FAERS Safety Report 12687207 (Version 1)
Quarter: 2016Q3

REPORT INFORMATION
  Report Type: Report from Study
  Country: CH (occurrence: CH)
  Receive Date: 20160826
  Receipt Date: 20160826
  Transmission Date: 20161109
  Serious: Yes (Congenital Anomaly, Other)
  Sender: FDA-Public Use
  Company Number: CH-SUN PHARMACEUTICAL INDUSTRIES LTD-2016RR-122615

PATIENT

DRUGS (3)
  1. ENOXAPARIN SODIUM. [Suspect]
     Active Substance: ENOXAPARIN SODIUM
     Indication: PRODUCT USED FOR UNKNOWN INDICATION
     Dosage: UNTIL 38 GESTATION WEEKS
     Route: 064
  2. PREGABALIN. [Suspect]
     Active Substance: PREGABALIN
     Indication: PRODUCT USED FOR UNKNOWN INDICATION
     Route: 064
  3. ASPIRIN. [Suspect]
     Active Substance: ASPIRIN
     Indication: PRODUCT USED FOR UNKNOWN INDICATION
     Dosage: UNTIL 36 GESTATION WEEKS
     Route: 064

REACTIONS (8)
  - Foetal exposure during pregnancy [Unknown]
  - Metabolic acidosis [Unknown]
  - Hypotonia [Unknown]
  - Shock [Unknown]
  - Renal failure [Unknown]
  - Foetal growth restriction [Unknown]
  - Respiratory distress [Unknown]
  - Hepatocellular injury [Unknown]
